FAERS Safety Report 24452854 (Version 1)
Quarter: 2024Q4

REPORT INFORMATION
  Report Type: Spontaneous
  Country: US (occurrence: US)
  Receive Date: 20241017
  Receipt Date: 20241017
  Transmission Date: 20250115
  Serious: No
  Sender: SUNOVION
  Company Number: US-SMPA-202404-URV-000616AA

PATIENT
  Sex: Female
  Weight: 63.492 kg

DRUGS (3)
  1. GEMTESA [Suspect]
     Active Substance: VIBEGRON
     Indication: Bladder disorder
     Dosage: 75 MG, QD
     Route: 065
  2. CRESTOR [Concomitant]
     Active Substance: ROSUVASTATIN CALCIUM
     Indication: Product used for unknown indication
     Route: 065
  3. VITAMINS                           /00067501/ [Concomitant]
     Indication: Product used for unknown indication
     Route: 065

REACTIONS (1)
  - Hypertension [Recovered/Resolved]
